FAERS Safety Report 24934786 (Version 1)
Quarter: 2025Q1

REPORT INFORMATION
  Report Type: Spontaneous
  Country: US (occurrence: US)
  Receive Date: 20250206
  Receipt Date: 20250206
  Transmission Date: 20250408
  Serious: No
  Sender: WOCKHARDT BIO AG
  Company Number: US-WOCKHARDT BIO AG-2024WBA000006

PATIENT

DRUGS (2)
  1. DEXTROMETHORPHAN\PROMETHAZINE [Suspect]
     Active Substance: DEXTROMETHORPHAN\PROMETHAZINE
     Indication: Product used for unknown indication
     Route: 065
  2. AUVELITY [Suspect]
     Active Substance: BUPROPION HYDROCHLORIDE\DEXTROMETHORPHAN HYDROBROMIDE
     Indication: Product used for unknown indication
     Route: 065

REACTIONS (2)
  - Tachyphrenia [Unknown]
  - Anxiety [Unknown]
